FAERS Safety Report 12654187 (Version 1)
Quarter: 2016Q3

REPORT INFORMATION
  Report Type: Spontaneous
  Country: US (occurrence: None)
  Receive Date: 20160815
  Receipt Date: 20160815
  Transmission Date: 20161109
  Serious: Yes (Other)
  Sender: FDA-Public Use
  Company Number: None

PATIENT
  Age: 70 Year
  Sex: Male
  Weight: 108.86 kg

DRUGS (4)
  1. METAMUCIL [Concomitant]
     Active Substance: PLANTAGO SEED
  2. ASPIRIN. [Concomitant]
     Active Substance: ASPIRIN
  3. MUCINEX [Concomitant]
     Active Substance: GUAIFENESIN
  4. RESTASIS [Suspect]
     Active Substance: CYCLOSPORINE
     Indication: EYE DISORDER
     Route: 047
     Dates: start: 20160808, end: 20160810

REACTIONS (1)
  - Eye irritation [None]

NARRATIVE: CASE EVENT DATE: 20160809
